FAERS Safety Report 10128557 (Version 2)
Quarter: 2014Q2

REPORT INFORMATION
  Report Type: Spontaneous
  Country: US (occurrence: US)
  Receive Date: 20140428
  Receipt Date: 20140530
  Transmission Date: 20141212
  Serious: No
  Sender: FDA-Public Use
  Company Number: US-B.I. PHARMACEUTICALS,INC./RIDGEFIELD-2014-BI-17810BP

PATIENT
  Age: 67 Year
  Sex: Female

DRUGS (12)
  1. SPIRIVA [Suspect]
     Indication: EMPHYSEMA
     Dosage: 18 MCG
     Route: 055
     Dates: start: 20140411
  2. COMBIVENT RESPIMAT [Concomitant]
     Route: 055
  3. TENORMIN [Concomitant]
     Route: 048
  4. COZAAR [Concomitant]
     Route: 048
  5. HYDROCHLOROTHIAZIDE [Concomitant]
     Route: 048
  6. METFORMIN [Concomitant]
     Route: 048
  7. ASPIRIN [Concomitant]
     Route: 048
  8. MEVACOR [Concomitant]
     Route: 048
  9. INSULIN [Concomitant]
     Route: 058
  10. FISH OIL [Concomitant]
     Route: 048
  11. BIOTIN [Concomitant]
     Route: 048
  12. GLUCOSAMINE [Concomitant]
     Route: 048

REACTIONS (2)
  - Cough [Not Recovered/Not Resolved]
  - Product quality issue [Recovered/Resolved]
